FAERS Safety Report 9836966 (Version 1)
Quarter: 2013Q4

REPORT INFORMATION
  Report Type: Spontaneous
  Country: US (occurrence: None)
  Receive Date: 20131205
  Receipt Date: 20131205
  Transmission Date: 20140711
  Serious: Yes (Other)
  Sender: FDA-Public Use
  Company Number: 163-POMAL-13090340

PATIENT
  Age: 87 Year
  Sex: Male
  Weight: 76.2 kg

DRUGS (11)
  1. POMALYST (POMALIDOMIDE) (3 MILLIGRAM, CAPSULES) [Suspect]
     Indication: PLASMA CELL MYELOMA
     Route: 048
     Dates: start: 20130411, end: 2013
  2. DEXAMETHASONE (DEXAMETHASONE) (UNKNOWN) [Concomitant]
  3. ZOMETA (ZOLENDRONIC ACID) [Concomitant]
  4. OMEPRAZOLE (OMEPRAZOLE) [Concomitant]
  5. ONDANSETRON HCL (ONDANSETRON) [Concomitant]
  6. DOXAZOSIN MESYLATE (DOXAZOSIN MESILATE) [Concomitant]
  7. ACYCLOVIR (ACICLOVIR) (TABLETS) [Concomitant]
  8. BACTRIM DS (BACTRIM) (UNKNOWN) [Concomitant]
  9. VITAMIN D (ERGOCALCIFEROL)(UNKNOWN) [Concomitant]
  10. MULTIVITAMINS (MULTIVITAMINS) (CAPSULES) [Concomitant]
  11. COLACE [Concomitant]

REACTIONS (1)
  - Haematuria [None]
